FAERS Safety Report 17239407 (Version 1)
Quarter: 2020Q1

REPORT INFORMATION
  Report Type: Report from Study
  Country: US (occurrence: US)
  Receive Date: 20200106
  Receipt Date: 20200106
  Transmission Date: 20200409
  Serious: Yes (Death)
  Sender: FDA-Public Use
  Company Number: US-PFIZER INC-2020002833

PATIENT

DRUGS (3)
  1. BUSULFAN. [Suspect]
     Active Substance: BUSULFAN
     Indication: ALLOGENIC STEM CELL TRANSPLANTATION
     Dosage: UNK (REDUCED-INTENSITY CONDITIONING)
  2. ALEMTUZUMAB [Suspect]
     Active Substance: ALEMTUZUMAB
     Indication: ALLOGENIC STEM CELL TRANSPLANTATION
     Dosage: UNK (REDUCED-INTENSITY CONDITIONING)
     Route: 042
  3. FLUDARABINE PHOSPHATE. [Suspect]
     Active Substance: FLUDARABINE PHOSPHATE
     Indication: ALLOGENIC STEM CELL TRANSPLANTATION
     Dosage: UNK (REDUCED-INTENSITY CONDITIONING)

REACTIONS (1)
  - Respiratory failure [Fatal]
